FAERS Safety Report 5393840-6 (Version None)
Quarter: 2007Q3

REPORT INFORMATION
  Report Type: 
  Country: None (occurrence: None)
  Receive Date: 20070723
  Receipt Date: 20070720
  Transmission Date: 20080115
  Serious: Yes (Other)
  Sender: FDA-Public Use
  Company Number: A0665242A

PATIENT
  Age: 80 Year
  Sex: Female

DRUGS (1)
  1. ALLI [Suspect]
     Indication: WEIGHT LOSS DIET
     Route: 065
     Dates: start: 20070703, end: 20070719

REACTIONS (4)
  - BURNING SENSATION [None]
  - DERMATITIS ACNEIFORM [None]
  - LIVER DISORDER [None]
  - VASCULITIS [None]
